FAERS Safety Report 8453054-X (Version None)
Quarter: 2012Q2

REPORT INFORMATION
  Report Type: 
  Country: None (occurrence: None)
  Receive Date: 20120620
  Receipt Date: 20120504
  Transmission Date: 20120825
  Serious: No
  Sender: FDA-Public Use
  Company Number: US-VERTEX PHARMACEUTICALS INC.-AE-2012-006540

PATIENT
  Sex: Female
  Weight: 82.628 kg

DRUGS (7)
  1. VITAMIN D [Concomitant]
     Indication: MEDICAL DIET
     Route: 048
  2. INCIVEK [Suspect]
     Indication: HEPATITIS C
     Route: 048
     Dates: start: 20120209, end: 20120502
  3. RIBASPHERE [Concomitant]
     Indication: HEPATITIS C
     Route: 048
     Dates: start: 20120209
  4. THYROID TAB [Concomitant]
     Indication: HYPOTHYROIDISM
     Route: 048
  5. PEGASYS [Concomitant]
     Indication: HEPATITIS C
     Route: 058
     Dates: start: 20120208
  6. MULTI-VITAMIN [Concomitant]
     Indication: MEDICAL DIET
     Route: 048
  7. ASPIRIN [Concomitant]
     Indication: ANTICOAGULANT THERAPY
     Route: 048

REACTIONS (1)
  - PRURITUS GENERALISED [None]
